FAERS Safety Report 9335469 (Version 2)
Quarter: 2015Q1

REPORT INFORMATION
  Report Type: Report from Study
  Country: US (occurrence: US)
  Receive Date: 20130606
  Receipt Date: 20150318
  Transmission Date: 20150721
  Serious: Yes (Death)
  Sender: FDA-Public Use
  Company Number: US-ROCHE-1233742

PATIENT
  Sex: Female

DRUGS (3)
  1. AVASTIN [Suspect]
     Active Substance: BEVACIZUMAB
     Indication: GASTRIC CANCER
     Route: 065
  2. XELODA [Suspect]
     Active Substance: CAPECITABINE
     Indication: GASTRIC CANCER
     Route: 065
  3. HERCEPTIN [Suspect]
     Active Substance: TRASTUZUMAB
     Indication: GASTRIC CANCER
     Route: 065

REACTIONS (8)
  - Peritoneal disorder [Unknown]
  - Metastases to lung [Unknown]
  - Metastatic gastric cancer [Unknown]
  - Abdominal discomfort [Unknown]
  - Ascites [Unknown]
  - Change of bowel habit [Unknown]
  - Pleural effusion [Unknown]
  - Death [Fatal]
